FAERS Safety Report 16215028 (Version 1)
Quarter: 2019Q2

REPORT INFORMATION
  Report Type: Other
  Country: GB (occurrence: GB)
  Receive Date: 20190418
  Receipt Date: 20190418
  Transmission Date: 20190711
  Serious: Yes (Death, Hospitalization)
  Sender: FDA-Public Use
  Company Number: GB-CELLTRION INC.-2019GB020467

PATIENT

DRUGS (2)
  1. RITUXIMAB (UNKNOWN) [Suspect]
     Active Substance: RITUXIMAB
     Dosage: 1000 MILLIGRAM (1 TOTAL)
     Route: 042
     Dates: start: 20190214, end: 20190214
  2. RITUXIMAB (UNKNOWN) [Suspect]
     Active Substance: RITUXIMAB
     Indication: PULMONARY VASCULITIS
     Dosage: 1000 MILLIGRAM (1 TOTAL)
     Route: 042
     Dates: start: 20180906, end: 20180906

REACTIONS (3)
  - Immunosuppression [Fatal]
  - Sepsis [Fatal]
  - Confusional state [Fatal]

NARRATIVE: CASE EVENT DATE: 20190306
